FAERS Safety Report 4889649-X (Version None)
Quarter: 2006Q1

REPORT INFORMATION
  Report Type: 
  Country: None (occurrence: None)
  Receive Date: 20060124
  Receipt Date: 20060116
  Transmission Date: 20060701
  Serious: Yes (Hospitalization)
  Sender: FDA-Public Use
  Company Number: FR-GLAXOSMITHKLINE-B0407393A

PATIENT
  Age: 58 Year
  Sex: Female

DRUGS (1)
  1. AUGMENTIN [Suspect]
     Route: 048
     Dates: end: 20051208

REACTIONS (8)
  - ALANINE AMINOTRANSFERASE INCREASED [None]
  - ASPARTATE AMINOTRANSFERASE INCREASED [None]
  - ASTHENIA [None]
  - BLOOD ALKALINE PHOSPHATASE INCREASED [None]
  - CHOLESTASIS [None]
  - HEPATOCELLULAR DAMAGE [None]
  - HYPERBILIRUBINAEMIA [None]
  - JAUNDICE [None]
